FAERS Safety Report 7815149-0 (Version None)
Quarter: 2011Q4

REPORT INFORMATION
  Report Type: 
  Country: None (occurrence: None)
  Receive Date: 20111014
  Receipt Date: 20111014
  Transmission Date: 20120403
  Serious: No
  Sender: FDA-Public Use
  Company Number: None

PATIENT
  Age: 57 Year
  Sex: Female
  Weight: 90.718 kg

DRUGS (1)
  1. HIZENTRA [Suspect]
     Indication: IMMUNODEFICIENCY
     Dosage: 19 GRAMS
     Route: 059
     Dates: start: 20110628, end: 20111008

REACTIONS (4)
  - ABDOMINAL PAIN UPPER [None]
  - REACTION TO DRUG EXCIPIENTS [None]
  - PYREXIA [None]
  - INJECTION SITE HAEMATOMA [None]
